FAERS Safety Report 5134666-8 (Version None)
Quarter: 2006Q4

REPORT INFORMATION
  Report Type: 
  Country: None (occurrence: None)
  Receive Date: 20061025
  Receipt Date: 20061017
  Transmission Date: 20070319
  Serious: Yes (Hospitalization)
  Sender: FDA-Public Use
  Company Number: FR-GLAXOSMITHKLINE-B0443552A

PATIENT
  Age: 55 Year
  Sex: Male

DRUGS (11)
  1. AUGMENTIN '125' [Suspect]
     Route: 042
     Dates: start: 20060915, end: 20060915
  2. PENICILLIN G [Concomitant]
     Route: 065
     Dates: start: 20060913
  3. CIFLOX [Concomitant]
     Route: 065
     Dates: start: 20060913
  4. OFLOCET [Concomitant]
     Route: 065
     Dates: start: 20060601
  5. GLUCOPHAGE [Concomitant]
     Route: 065
  6. APROVEL [Concomitant]
     Route: 065
  7. ASPIRIN [Concomitant]
     Route: 065
  8. AMLOR [Concomitant]
     Route: 065
  9. LANTUS [Concomitant]
     Route: 065
  10. CRESTOR [Concomitant]
     Route: 065
  11. XATRAL [Concomitant]
     Route: 065

REACTIONS (5)
  - MALAISE [None]
  - NAUSEA [None]
  - RESPIRATORY ARREST [None]
  - SHOCK [None]
  - VOMITING [None]
